FAERS Safety Report 20721054 (Version 6)
Quarter: 2023Q1

REPORT INFORMATION
  Report Type: Report from Study
  Country: US (occurrence: US)
  Receive Date: 20220418
  Receipt Date: 20230105
  Transmission Date: 20230417
  Serious: Yes (Other)
  Sender: FDA-Public Use
  Company Number: US-BIOGEN-2022BI01115067

PATIENT
  Age: 50 Year
  Sex: Female

DRUGS (25)
  1. TYSABRI [Suspect]
     Active Substance: NATALIZUMAB
     Indication: Multiple sclerosis
     Dosage: INFUSED OVER 1 HOUR
     Route: 050
     Dates: start: 20110502, end: 20220208
  2. TYSABRI [Suspect]
     Active Substance: NATALIZUMAB
     Dosage: INFUSED OVER 1 HOUR
     Route: 050
     Dates: start: 2010
  3. AMPYRA [Suspect]
     Active Substance: DALFAMPRIDINE
     Indication: Multiple sclerosis
     Route: 050
     Dates: end: 20220328
  4. AMPYRA [Suspect]
     Active Substance: DALFAMPRIDINE
     Route: 050
     Dates: start: 20220328, end: 20220427
  5. VITAMINS NOS [Concomitant]
     Active Substance: VITAMINS
     Indication: Product used for unknown indication
     Route: 050
  6. Calcium 1200 (Calcium carbonate-Vitamin D-Minerals) [Concomitant]
     Indication: Product used for unknown indication
     Route: 050
  7. CRANBERRY [Concomitant]
     Active Substance: CRANBERRY
     Indication: Product used for unknown indication
     Dosage: AS NEEDED
     Route: 050
  8. CRANBERRY [Concomitant]
     Active Substance: CRANBERRY
     Route: 050
  9. FLEXERIL [Concomitant]
     Active Substance: CYCLOBENZAPRINE HYDROCHLORIDE
     Indication: Product used for unknown indication
     Route: 050
     Dates: start: 20220201
  10. FLEXERIL [Concomitant]
     Active Substance: CYCLOBENZAPRINE HYDROCHLORIDE
     Route: 050
  11. ZOLOFT [Concomitant]
     Active Substance: SERTRALINE HYDROCHLORIDE
     Indication: Product used for unknown indication
     Route: 050
  12. ZOLOFT [Concomitant]
     Active Substance: SERTRALINE HYDROCHLORIDE
     Route: 050
  13. ZOLOFT [Concomitant]
     Active Substance: SERTRALINE HYDROCHLORIDE
     Dosage: 2.5-2.5% APPLY TO IV SITE 1 HOUR PRIOR TO TYSABRI INFUSION
     Route: 050
  14. ZOLOFT [Concomitant]
     Active Substance: SERTRALINE HYDROCHLORIDE
     Dosage: AS NEEDED
     Route: 050
  15. ZOLOFT [Concomitant]
     Active Substance: SERTRALINE HYDROCHLORIDE
     Route: 050
  16. ZOLPIDEM [Concomitant]
     Active Substance: ZOLPIDEM TARTRATE
     Indication: Insomnia
     Dosage: BY MOUTH NIGHTLY AS NEEDED FOR SLEEP
     Route: 050
  17. ZOLPIDEM [Concomitant]
     Active Substance: ZOLPIDEM TARTRATE
     Route: 050
  18. ZOLPIDEM [Concomitant]
     Active Substance: ZOLPIDEM TARTRATE
     Dosage: 2.5-2.5% APPLY TO IV SITE 1 HOUR PRIOR TO TYSABRI INFUSION
     Route: 050
  19. ZOLPIDEM [Concomitant]
     Active Substance: ZOLPIDEM TARTRATE
     Dosage: AS NEEDED
     Route: 050
  20. ZOLPIDEM [Concomitant]
     Active Substance: ZOLPIDEM TARTRATE
     Route: 050
  21. OXYBUTYNIN [Concomitant]
     Active Substance: OXYBUTYNIN
     Indication: Product used for unknown indication
     Route: 050
  22. LIDOCAINE\PRILOCAINE [Concomitant]
     Active Substance: LIDOCAINE\PRILOCAINE
     Indication: Product used for unknown indication
     Dosage: 2.5-2.5% CREAM?APPLICATION SITE: APPLY TO IV SITE 1 HOUR PRIOR TO TYSABRI INFUSION
     Route: 050
     Dates: start: 20210317
  23. Fiber therapy (methylcellulose) [Concomitant]
     Indication: Laxative supportive care
     Dosage: AS NEEDED
     Route: 050
  24. CANNABIDIOL\HERBALS [Concomitant]
     Active Substance: CANNABIDIOL\HERBALS
     Indication: Product used for unknown indication
     Dosage: 1 DROPPER FULL UNDER TONGUE AS NEEDED
     Route: 050
  25. VITAMIN D3 [Concomitant]
     Active Substance: CHOLECALCIFEROL
     Indication: Product used for unknown indication
     Route: 050

REACTIONS (24)
  - Pleural mesothelioma malignant [Not Recovered/Not Resolved]
  - Multiple sclerosis relapse [Unknown]
  - Vitamin D deficiency [Unknown]
  - Affective disorder [Unknown]
  - Vulvovaginal mycotic infection [Unknown]
  - Cognitive disorder [Unknown]
  - Abnormal loss of weight [Unknown]
  - Feeding disorder [Unknown]
  - Disease risk factor [Unknown]
  - Ageusia [Unknown]
  - Inappropriate schedule of product administration [Unknown]
  - Hemiparesis [Unknown]
  - Neurogenic bladder [Unknown]
  - Muscle spasticity [Unknown]
  - Cough [Unknown]
  - Influenza like illness [Unknown]
  - Central nervous system lesion [Unknown]
  - Blood chloride increased [Unknown]
  - Carbon dioxide decreased [Unknown]
  - Blood glucose increased [Unknown]
  - Blood urea decreased [Unknown]
  - Dyspnoea [Unknown]
  - Lymphocyte count increased [Unknown]
  - Urinary tract infection [Unknown]

NARRATIVE: CASE EVENT DATE: 20150410
